FAERS Safety Report 9026524 (Version 1)
Quarter: 2013Q1

REPORT INFORMATION
  Report Type: Spontaneous
  Country: FR (occurrence: None)
  Receive Date: 20130107
  Receipt Date: 20130107
  Transmission Date: 20140127
  Serious: Yes (Hospitalization)
  Sender: FDA-Public Use
  Company Number: DSA_61656_2012

PATIENT
  Age: 60 Year
  Sex: Female

DRUGS (7)
  1. MONO TILDIEM (MONO TILDIEM LP-DILTIAZEM HYDROCHLORIDE) (NOT SPECIFIED) [Suspect]
     Indication: PRODUCT USED FOR UNKNOWN INDICATION
     Route: 048
     Dates: end: 20121119
  2. KARDEGIC (KARDEGIC-ACETYLSALICYLATE) [Suspect]
     Indication: PRODUCT USED FOR UNKNOWN INDICATION
     Route: 048
  3. TAHOR (TAHOR-ATORVASTATIN CALCIUM) [Suspect]
     Indication: DYSLIPIDAEMIA
  4. EZETROL (EZETROL-EZETIMIBE) (NOT SPECIFIED) [Suspect]
     Indication: PRODUCT USED FOR UNKNOWN INDICATION
     Route: 048
  5. DUPHASTON (DUPHASTON-DYDROGESTERONE) [Suspect]
     Indication: PRODUCT USED FOR UNKNOWN INDICATION
     Dosage: 10 MG FREQUENCY UNSPECIFIED, ORAL)
     Route: 048
     Dates: start: 201209
  6. ESTREVA (ESTREVA-ESTRADIOL) (NOT SPECIFIED) [Suspect]
     Indication: PRODUCT USED FOR UNKNOWN INDICATION
     Dates: start: 201209
  7. NATISPRAY (UNKNOWN UNTIL CONTINUING) [Concomitant]

REACTIONS (3)
  - Optic neuritis [None]
  - Vision blurred [None]
  - Photophobia [None]
